FAERS Safety Report 20568724 (Version 5)
Quarter: 2022Q2

REPORT INFORMATION
  Report Type: Spontaneous
  Country: IL (occurrence: IL)
  Receive Date: 20220308
  Receipt Date: 20220628
  Transmission Date: 20220721
  Serious: Yes (Death, Life-Threatening, Other)
  Sender: FDA-Public Use
  Company Number: IL-ALXN-A202203067

PATIENT
  Age: 51 Year
  Sex: Female

DRUGS (11)
  1. SOLIRIS [Suspect]
     Active Substance: ECULIZUMAB
     Indication: Haemolytic uraemic syndrome
     Dosage: 900 MG, Q2W
     Route: 065
  2. SOLIRIS [Suspect]
     Active Substance: ECULIZUMAB
     Indication: Off label use
  3. SOLIRIS [Suspect]
     Active Substance: ECULIZUMAB
     Indication: Transplant rejection
  4. IMMUNOGLOBULIN                     /07494701/ [Concomitant]
     Indication: Haemolytic uraemic syndrome
     Dosage: UNK
     Route: 042
  5. IMMUNOGLOBULIN                     /07494701/ [Concomitant]
     Indication: Transplant rejection
  6. MYCOPHENOLATE MOFETIL [Concomitant]
     Active Substance: MYCOPHENOLATE MOFETIL
     Indication: Haemolytic uraemic syndrome
     Dosage: 500 MG, BID
     Route: 065
  7. MYCOPHENOLATE MOFETIL [Concomitant]
     Active Substance: MYCOPHENOLATE MOFETIL
     Indication: Transplant rejection
  8. PREDNISONE [Concomitant]
     Active Substance: PREDNISONE
     Indication: Haemolytic uraemic syndrome
     Dosage: 5 MG, QD
     Route: 065
  9. PREDNISONE [Concomitant]
     Active Substance: PREDNISONE
     Indication: Transplant rejection
  10. TACROLIMUS [Concomitant]
     Active Substance: TACROLIMUS
     Indication: Haemolytic uraemic syndrome
     Dosage: UNK
     Route: 065
  11. TACROLIMUS [Concomitant]
     Active Substance: TACROLIMUS
     Indication: Transplant rejection

REACTIONS (3)
  - Post transplant lymphoproliferative disorder [Fatal]
  - Seizure [Unknown]
  - Off label use [Unknown]
